FAERS Safety Report 22642984 (Version 1)
Quarter: 2023Q2

REPORT INFORMATION
  Report Type: Spontaneous
  Country: FR (occurrence: FR)
  Receive Date: 20230627
  Receipt Date: 20230627
  Transmission Date: 20230722
  Serious: Yes (Other)
  Sender: FDA-Public Use
  Company Number: FR-AFSSAPS-PA2023001437

PATIENT
  Age: 33 Year
  Sex: Female

DRUGS (4)
  1. CYAMEMAZINE [Interacting]
     Active Substance: CYAMEMAZINE
     Indication: Bipolar II disorder
     Dosage: 700 MILLIGRAM, ONCE A DAY (CYAMEMAZINE 100 MG: 3 TAB IN THE MORNING, 3 TAB IN THE AFTERNOON AND 1 TA
     Route: 048
     Dates: start: 2010
  2. QUETIAPINE [Interacting]
     Active Substance: QUETIAPINE
     Indication: Bipolar II disorder
     Dosage: 800 MILLIGRAM, ONCE A DAY (QU?TIAPINE LP 400 MG : 1CP LE MATIN, 1 CP LE SOI)
     Route: 048
     Dates: start: 202211
  3. PYRIDOXINE HYDROCHLORIDE\THIAMINE HYDROCHLORIDE [Interacting]
     Active Substance: PYRIDOXINE HYDROCHLORIDE\THIAMINE HYDROCHLORIDE
     Indication: Dyskinesia
     Dosage: 500 MILLIGRAM
     Route: 048
     Dates: start: 2017
  4. PYRIDOXINE HYDROCHLORIDE\THIAMINE HYDROCHLORIDE [Interacting]
     Active Substance: PYRIDOXINE HYDROCHLORIDE\THIAMINE HYDROCHLORIDE
     Dosage: 500 MILLIGRAM
     Route: 048
     Dates: start: 20230309, end: 20230512

REACTIONS (2)
  - Bipolar II disorder [Recovered/Resolved]
  - Drug interaction [Recovered/Resolved]
